FAERS Safety Report 5170793-7 (Version None)
Quarter: 2006Q4

REPORT INFORMATION
  Report Type: 
  Country: None (occurrence: None)
  Receive Date: 20061205
  Receipt Date: 20061205
  Transmission Date: 20070319
  Serious: No
  Sender: FDA-Public Use
  Company Number: None

PATIENT
  Age: 57 Year
  Sex: Female
  Weight: 91.5 kg

DRUGS (3)
  1. ERBITUX [Suspect]
     Indication: PANCREATIC CARCINOMA
     Dosage: 400 MG/M2 X 1, 250 MG/M2 WEEKLY
  2. GEMZAR [Suspect]
     Dosage: 50 MG/M2 2 X A WEEK
  3. RADIATION THERAPY [Concomitant]

REACTIONS (6)
  - BILE DUCT OBSTRUCTION [None]
  - CONDITION AGGRAVATED [None]
  - FATIGUE [None]
  - JAUNDICE [None]
  - OEDEMA PERIPHERAL [None]
  - STENT OCCLUSION [None]
